FAERS Safety Report 6349693-2 (Version None)
Quarter: 2009Q3

REPORT INFORMATION
  Report Type: 
  Country: None (occurrence: None)
  Receive Date: 20090911
  Receipt Date: 20090903
  Transmission Date: 20100115
  Serious: Yes (Hospitalization)
  Sender: FDA-Public Use
  Company Number: BR-ELI_LILLY_AND_COMPANY-BR200906005166

PATIENT
  Age: 79 Year
  Sex: Female
  Weight: 61 kg

DRUGS (6)
  1. FORTEO [Suspect]
     Indication: OSTEOPOROSIS
     Dosage: 1 ML, DAILY (1/D)
     Route: 065
     Dates: start: 20080101, end: 20090701
  2. OMEPRAZOLE [Concomitant]
     Dosage: UNK, UNKNOWN
     Route: 065
  3. LOSARTAN [Concomitant]
     Dosage: UNK, UNKNOWN
     Route: 065
  4. METHYLDOPA [Concomitant]
     Dosage: UNK, UNKNOWN
     Route: 065
  5. ALDACTONE [Concomitant]
     Dosage: UNK, UNKNOWN
     Route: 065
  6. CALCIUM PHOSPHATE W/COLECALCIFEROL [Concomitant]
     Dosage: UNK, UNKNOWN
     Route: 065

REACTIONS (1)
  - ARRHYTHMIA [None]
